FAERS Safety Report 19655131 (Version 1)
Quarter: 2021Q3

REPORT INFORMATION
  Report Type: Spontaneous
  Country: CA (occurrence: CA)
  Receive Date: 20210803
  Receipt Date: 20210803
  Transmission Date: 20211014
  Serious: Yes (Other)
  Sender: FDA-Public Use
  Company Number: CA-JNJFOC-20210759688

PATIENT
  Age: 28 Year
  Sex: Male

DRUGS (3)
  1. MEZAVANT [Concomitant]
     Active Substance: MESALAMINE
     Route: 065
  2. INFLIXIMAB, RECOMBINANT [Suspect]
     Active Substance: INFLIXIMAB
     Indication: COLITIS ULCERATIVE
     Route: 042
  3. PREDNISONE. [Concomitant]
     Active Substance: PREDNISONE
     Route: 065

REACTIONS (11)
  - Cold sweat [Recovered/Resolved]
  - Infusion site extravasation [Recovered/Resolved]
  - Fear of injection [Recovered/Resolved]
  - Off label use [Recovered/Resolved]
  - Syncope [Recovered/Resolved]
  - Pallor [Recovered/Resolved]
  - Condition aggravated [Recovered/Resolved]
  - Intentional product use issue [Recovered/Resolved]
  - Feeling hot [Recovered/Resolved]
  - Stress [Recovered/Resolved]
  - Weight increased [Recovered/Resolved]
